FAERS Safety Report 7284809-5 (Version None)
Quarter: 2011Q1

REPORT INFORMATION
  Report Type: 
  Country: None (occurrence: None)
  Receive Date: 20110210
  Receipt Date: 20110207
  Transmission Date: 20110831
  Serious: No
  Sender: FDA-Public Use
  Company Number: US-PFIZER INC-2010145783

PATIENT
  Sex: Male
  Weight: 110.67 kg

DRUGS (5)
  1. PRISTIQ [Suspect]
     Dosage: 50 MG, 1X/DAY
     Dates: start: 20101112, end: 20101212
  2. OXYCODONE [Concomitant]
     Indication: PAIN
     Dosage: UNK
     Dates: start: 20050101
  3. PRISTIQ [Suspect]
     Indication: NEUROPATHY PERIPHERAL
     Dosage: 50 MG, 1X/DAY
     Route: 048
     Dates: start: 20101107, end: 20101107
  4. NEURONTIN [Concomitant]
     Dosage: UNK
  5. MORPHINE SULFATE [Concomitant]
     Indication: PAIN
     Dosage: UNK
     Dates: start: 20050101

REACTIONS (3)
  - DIZZINESS [None]
  - PHOTOSENSITIVITY REACTION [None]
  - FEELING ABNORMAL [None]
